FAERS Safety Report 10274477 (Version 1)
Quarter: 2014Q3

REPORT INFORMATION
  Report Type: Spontaneous
  Country: US (occurrence: US)
  Receive Date: 20140702
  Receipt Date: 20140702
  Transmission Date: 20150326
  Serious: No
  Sender: FDA-Public Use
  Company Number: US-PFIZER INC-2014177569

PATIENT
  Sex: Male

DRUGS (2)
  1. LYRICA [Suspect]
     Active Substance: PREGABALIN
     Dosage: 150 MG, BID (POSSIBLY TID)
  2. LYRICA [Suspect]
     Active Substance: PREGABALIN
     Dosage: 100 MG BID (POSSIBLY TID)

REACTIONS (1)
  - Gait disturbance [Unknown]
